FAERS Safety Report 18328504 (Version 2)
Quarter: 2020Q4

REPORT INFORMATION
  Report Type: Other
  Country: US (occurrence: US)
  Receive Date: 20200930
  Receipt Date: 20201005
  Transmission Date: 20210113
  Serious: Yes (Other)
  Sender: FDA-Public Use
  Company Number: US-ROCHE-2683846

PATIENT

DRUGS (2)
  1. CAPECITABINE. [Suspect]
     Active Substance: CAPECITABINE
     Indication: NEUROENDOCRINE TUMOUR
     Route: 065
  2. TEMOZOLOMIDE. [Suspect]
     Active Substance: TEMOZOLOMIDE
     Indication: NEUROENDOCRINE TUMOUR
     Route: 065

REACTIONS (7)
  - Thrombocytopenia [Unknown]
  - Herpes zoster [Unknown]
  - Lymphopenia [Unknown]
  - Haemorrhage [Unknown]
  - Neutropenia [Unknown]
  - Myelodysplastic syndrome [Unknown]
  - Myeloproliferative neoplasm [Unknown]
